FAERS Safety Report 8432943-6 (Version None)
Quarter: 2012Q2

REPORT INFORMATION
  Report Type: 
  Country: None (occurrence: None)
  Receive Date: 20120613
  Receipt Date: 20120604
  Transmission Date: 20120825
  Serious: Yes (Other)
  Sender: FDA-Public Use
  Company Number: US-ASTRAZENECA-2012SE33259

PATIENT
  Age: 49 Year
  Sex: Female
  Weight: 108.9 kg

DRUGS (10)
  1. SEROQUEL [Suspect]
     Indication: MENTAL DISORDER
     Route: 048
     Dates: start: 20080101
  2. SEROQUEL [Suspect]
     Indication: BIPOLAR DISORDER
     Route: 048
     Dates: start: 20080101
  3. JANUMET [Concomitant]
     Indication: DIABETES MELLITUS
     Dosage: 50/1000
  4. GLIMEPIRIDE [Concomitant]
     Indication: DIABETES MELLITUS
  5. CYMBALTA [Concomitant]
     Indication: FIBROMYALGIA
  6. TRAMADOL HCL [Concomitant]
     Indication: PAIN
  7. SYNTHROID [Concomitant]
     Indication: HYPOTHYROIDISM
  8. RESTASIS [Concomitant]
     Indication: DRY EYE
  9. NATEGLINIDE [Concomitant]
     Indication: DIABETES MELLITUS
  10. NEURONTIN [Concomitant]
     Indication: FIBROMYALGIA

REACTIONS (6)
  - IMPAIRED HEALING [None]
  - MEMORY IMPAIRMENT [None]
  - INSOMNIA [None]
  - HYPOTHYROIDISM [None]
  - FEELING ABNORMAL [None]
  - BLOOD GLUCOSE INCREASED [None]
